FAERS Safety Report 23201283 (Version 3)
Quarter: 2024Q1

REPORT INFORMATION
  Report Type: Other
  Country: US (occurrence: US)
  Receive Date: 20231118
  Receipt Date: 20240326
  Transmission Date: 20240410
  Serious: No
  Sender: FDA-Public Use
  Company Number: US-TRAVERE-2023TVT00541

PATIENT
  Age: 28 Year
  Sex: Male

DRUGS (6)
  1. FILSPARI [Suspect]
     Active Substance: SPARSENTAN
     Indication: IgA nephropathy
     Route: 048
     Dates: start: 20230809, end: 20230918
  2. CLONIDINE [Concomitant]
     Active Substance: CLONIDINE
  3. FARXIGA [Concomitant]
     Active Substance: DAPAGLIFLOZIN PROPANEDIOL
  4. TELMISARTAN [Concomitant]
     Active Substance: TELMISARTAN
  5. VELTASSA [Concomitant]
     Active Substance: PATIROMER
  6. NIFEDIPINE [Concomitant]
     Active Substance: NIFEDIPINE

REACTIONS (3)
  - Hepatic enzyme increased [Recovering/Resolving]
  - Contraindicated product prescribed [Unknown]
  - Hypertension [Unknown]

NARRATIVE: CASE EVENT DATE: 20231101
